FAERS Safety Report 4797104-0 (Version None)
Quarter: 2005Q4

REPORT INFORMATION
  Report Type: 
  Country: None (occurrence: None)
  Receive Date: 20051013
  Receipt Date: 20051004
  Transmission Date: 20060501
  Serious: Yes (Death, Other)
  Sender: FDA-Public Use
  Company Number: PHBS2005JP14700

PATIENT
  Age: 75 Year
  Sex: Female

DRUGS (20)
  1. FLOMOX [Concomitant]
     Dosage: 300 MG/D
     Route: 048
     Dates: start: 20050201
  2. MAXIPIME [Concomitant]
     Dosage: 2 G/D
     Dates: start: 20050204
  3. TIENAM [Concomitant]
     Dosage: 1 G/D
  4. NEOPHYLLIN [Concomitant]
     Dates: start: 20050218
  5. HYDROCORTONE [Concomitant]
     Dosage: 200 MG/DAY
     Dates: start: 20050515
  6. HYDROCORTONE [Concomitant]
     Dates: start: 20050218
  7. HORIZON [Concomitant]
     Dates: start: 20050225
  8. RAVONAL [Concomitant]
     Dates: start: 20050225
  9. SOLU-MEDROL [Concomitant]
     Dosage: 500 MG/D
     Dates: start: 20050225
  10. INSULIN [Concomitant]
  11. ACLACINON [Concomitant]
     Dosage: 20 MG/D
     Dates: start: 20050226, end: 20050227
  12. FIRSTCIN [Concomitant]
     Dosage: 2 G/D
     Dates: start: 20050226
  13. INOVAN [Concomitant]
     Dosage: 3 ML/H
  14. NORADRENALINE [Concomitant]
  15. GASTER [Concomitant]
  16. ALLOID [Concomitant]
  17. ALBUMIN (HUMAN) [Concomitant]
     Dosage: 100 ML/DAY
     Dates: start: 20050227
  18. NEORAL [Suspect]
     Indication: MYELODYSPLASTIC SYNDROME
     Dosage: 200 MG/D
     Route: 048
     Dates: start: 20050122, end: 20050203
  19. NEORAL [Suspect]
     Dosage: 100 MG/D
     Route: 048
     Dates: start: 20050204, end: 20050210
  20. VEPESID [Concomitant]
     Dates: start: 20050502

REACTIONS (43)
  - ACUTE LEUKAEMIA [None]
  - ASCITES [None]
  - ASTHMA [None]
  - BLAST CELLS PRESENT [None]
  - BLOOD GLUCOSE INCREASED [None]
  - BONE MARROW DISORDER [None]
  - BRONCHITIS [None]
  - C-REACTIVE PROTEIN INCREASED [None]
  - CAPILLARY LEAK SYNDROME [None]
  - CELLULITIS [None]
  - CENTRAL NERVOUS SYSTEM NEOPLASM [None]
  - CHLOROMA [None]
  - CONJUNCTIVAL HAEMORRHAGE [None]
  - CONJUNCTIVAL OEDEMA [None]
  - CONVULSIONS LOCAL [None]
  - DISEASE PROGRESSION [None]
  - FEELING HOT [None]
  - GASTROINTESTINAL HAEMORRHAGE [None]
  - GENERALISED OEDEMA [None]
  - HYPERURICAEMIA [None]
  - HYPOALBUMINAEMIA [None]
  - HYPOTENSION [None]
  - HYPOVOLAEMIA [None]
  - INFLAMMATION [None]
  - LIFE SUPPORT [None]
  - LOCALISED OEDEMA [None]
  - MYELODYSPLASTIC SYNDROME [None]
  - OEDEMA PERIPHERAL [None]
  - OLIGURIA [None]
  - OSTEOARTHRITIS [None]
  - OXYGEN SATURATION DECREASED [None]
  - PAIN IN EXTREMITY [None]
  - PLEURAL EFFUSION [None]
  - PULMONARY OEDEMA [None]
  - PYREXIA [None]
  - RENAL DISORDER [None]
  - SCLERAL HAEMORRHAGE [None]
  - SCLERAL OEDEMA [None]
  - SEPSIS [None]
  - SWELLING FACE [None]
  - TUMOUR LYSIS SYNDROME [None]
  - URINE OUTPUT DECREASED [None]
  - WHITE BLOOD CELL COUNT INCREASED [None]
